FAERS Safety Report 6294805-2 (Version None)
Quarter: 2009Q3

REPORT INFORMATION
  Report Type: 
  Country: None (occurrence: None)
  Receive Date: 20090731
  Receipt Date: 20090731
  Transmission Date: 20100115
  Serious: Yes (Hospitalization)
  Sender: FDA-Public Use
  Company Number: None

PATIENT
  Age: 58 Year
  Sex: Female
  Weight: 53.8 kg

DRUGS (1)
  1. RITUXIMAB 500 MG GENETECH [Suspect]
     Indication: LYMPHOMA
     Dosage: 570 MG ONCE INTRACAVERNOUS
     Route: 017
     Dates: start: 20090730, end: 20090730

REACTIONS (4)
  - CHILLS [None]
  - DYSPNOEA [None]
  - INFUSION RELATED REACTION [None]
  - NASAL CONGESTION [None]
